FAERS Safety Report 9180234 (Version 1)
Quarter: 2013Q1

REPORT INFORMATION
  Report Type: Spontaneous
  Country: PT (occurrence: PT)
  Receive Date: 20130322
  Receipt Date: 20130322
  Transmission Date: 20140127
  Serious: Yes (Death)
  Sender: FDA-Public Use
  Company Number: PT-009507513-0906PRT00005

PATIENT
  Age: 55 Year
  Sex: Male

DRUGS (3)
  1. CANCIDAS [Suspect]
     Indication: ASPERGILLUS INFECTION
     Dosage: 70 MG DAILY
  2. CANCIDAS [Suspect]
     Dosage: 50 MG DAILY
  3. POSACONAZOLE [Suspect]
     Indication: ASPERGILLUS INFECTION
     Dosage: 200 MG FOUR TIMES DAILY
     Route: 048

REACTIONS (1)
  - Drug ineffective [Fatal]
